FAERS Safety Report 5913086-X (Version None)
Quarter: 2008Q4

REPORT INFORMATION
  Report Type: 
  Country: None (occurrence: None)
  Receive Date: 20081008
  Receipt Date: 20081008
  Transmission Date: 20090506
  Serious: Yes (Other)
  Sender: FDA-Public Use
  Company Number: None

PATIENT
  Age: 49 Year
  Sex: Female
  Weight: 80.7403 kg

DRUGS (1)
  1. LEVAQUIN [Suspect]

REACTIONS (3)
  - ARTHRALGIA [None]
  - DYSSTASIA [None]
  - JOINT SWELLING [None]
